FAERS Safety Report 14618837 (Version 1)
Quarter: 2018Q1

REPORT INFORMATION
  Report Type: Spontaneous
  Country: TR (occurrence: TR)
  Receive Date: 20180309
  Receipt Date: 20180309
  Transmission Date: 20180509
  Serious: Yes (Hospitalization, Other)
  Sender: FDA-Public Use
  Company Number: TR-TEVA-2018-TR-867133

PATIENT
  Age: 69 Year
  Sex: Female
  Weight: 85 kg

DRUGS (2)
  1. CARBOPLATIN. [Suspect]
     Active Substance: CARBOPLATIN
     Indication: CERVIX CARCINOMA
     Dosage: 200 MILLIGRAM DAILY; UNKNOWN FORM STRENGTH
     Route: 042
     Dates: start: 20180131, end: 20180131
  2. SINDAXEL [Suspect]
     Active Substance: PACLITAXEL
     Indication: CERVIX CARCINOMA
     Dosage: 140 MILLIGRAM DAILY; UNKNOWN FORM STRENGTH
     Route: 042
     Dates: start: 20180131, end: 20180131

REACTIONS (3)
  - Bronchospasm [Recovering/Resolving]
  - Erythema [Recovering/Resolving]
  - Generalised erythema [Recovering/Resolving]

NARRATIVE: CASE EVENT DATE: 20180131
